FAERS Safety Report 14723866 (Version 1)
Quarter: 2018Q2

REPORT INFORMATION
  Report Type: Spontaneous
  Country: JP (occurrence: JP)
  Receive Date: 20180405
  Receipt Date: 20180405
  Transmission Date: 20180711
  Serious: Yes (Other)
  Sender: FDA-Public Use
  Company Number: JP-CELGENEUS-JPN-20180400827

PATIENT
  Age: 73 Year
  Sex: Male

DRUGS (6)
  1. RAMUCIRUMAB [Suspect]
     Active Substance: RAMUCIRUMAB
     Indication: NEUROENDOCRINE CARCINOMA
     Dosage: .5714 MILLIGRAM/KILOGRAM
     Route: 042
  2. AMRUBICIN [Suspect]
     Active Substance: AMRUBICIN
     Indication: NEUROENDOCRINE CARCINOMA
     Dosage: 40 MILLIGRAM/SQ. METER
     Route: 065
     Dates: start: 201601
  3. ABRAXANE [Suspect]
     Active Substance: PACLITAXEL
     Dosage: 2.8571 MILLIGRAM/SQ. METER
     Route: 042
  4. IRINOTECAN [Suspect]
     Active Substance: IRINOTECAN
     Indication: NEUROENDOCRINE CARCINOMA
     Dosage: 60 MILLIGRAM/SQ. METER
     Route: 065
     Dates: start: 201508
  5. ABRAXANE [Suspect]
     Active Substance: PACLITAXEL
     Indication: NEUROENDOCRINE CARCINOMA
     Dosage: 5.7143 MILLIGRAM/SQ. METER
     Route: 042
  6. CISPLATIN. [Suspect]
     Active Substance: CISPLATIN
     Indication: NEUROENDOCRINE CARCINOMA
     Dosage: 60 MILLIGRAM/SQ. METER
     Route: 065
     Dates: start: 201508

REACTIONS (2)
  - Malaise [Unknown]
  - Palmar-plantar erythrodysaesthesia syndrome [Unknown]
